FAERS Safety Report 10202535 (Version 2)
Quarter: 2014Q2

REPORT INFORMATION
  Report Type: Report from Study
  Country: FR (occurrence: FR)
  Receive Date: 20140528
  Receipt Date: 20140618
  Transmission Date: 20141212
  Serious: Yes (Other)
  Sender: FDA-Public Use
  Company Number: FR-BRISTOL-MYERS SQUIBB COMPANY-20847158

PATIENT
  Age: 77 Year
  Sex: Female

DRUGS (14)
  1. CETUXIMAB [Suspect]
     Indication: NEOPLASM MALIGNANT
     Route: 042
     Dates: start: 20140226
  2. VEMURAFENIB [Suspect]
     Indication: NEOPLASM MALIGNANT
     Dosage: TABLET?TOTAL DOSE:1920MG
     Route: 048
     Dates: start: 20140226
  3. LISINOPRIL [Concomitant]
     Dates: start: 2000
  4. DAFALGAN [Concomitant]
     Dates: start: 2000
  5. FORLAX [Concomitant]
     Dates: start: 20140319
  6. DEXERYL [Concomitant]
     Dates: start: 20140319
  7. BISOPROLOL [Concomitant]
     Dates: start: 20140328
  8. KARDEGIC [Concomitant]
     Dates: start: 20140328
  9. SOLUPRED [Concomitant]
     Dates: start: 20140410
  10. ERYFLUID [Concomitant]
     Dates: start: 20140426
  11. TOLEXINE [Concomitant]
     Dates: start: 20140402
  12. DEBRIDAT [Concomitant]
     Dates: start: 20140306
  13. MIANSERIN [Concomitant]
     Dates: start: 20140306
  14. IMOVANE [Concomitant]
     Dates: start: 20140305

REACTIONS (1)
  - Squamous cell carcinoma [Recovered/Resolved]
